FAERS Safety Report 19460624 (Version 1)
Quarter: 2021Q2

REPORT INFORMATION
  Report Type: Report from Study
  Country: None (occurrence: US)
  Receive Date: 20210625
  Receipt Date: 20210625
  Transmission Date: 20210717
  Serious: Yes (Other)
  Sender: FDA-Public Use
  Company Number: US-ABBVIE-21K-163-3922671-00

PATIENT
  Age: 71 Year
  Sex: Female

DRUGS (3)
  1. HUMIRA [Suspect]
     Active Substance: ADALIMUMAB
     Indication: PSORIASIS
     Route: 058
  2. MODERNA COVID?19 VACCINE [Suspect]
     Active Substance: CX-024414
     Indication: COVID-19 IMMUNISATION
     Dosage: 1ST DOSE
     Route: 030
  3. MODERNA COVID?19 VACCINE [Suspect]
     Active Substance: CX-024414
     Dosage: 2ND DOSE
     Route: 030

REACTIONS (13)
  - Micturition urgency [Unknown]
  - Joint injury [Unknown]
  - Fall [Recovered/Resolved]
  - Fall [Unknown]
  - Diarrhoea [Unknown]
  - Mobility decreased [Unknown]
  - Urinary incontinence [Unknown]
  - Skin indentation [Unknown]
  - Hip surgery [Unknown]
  - Musculoskeletal disorder [Unknown]
  - Arthritis [Unknown]
  - Pain in extremity [Unknown]
  - Feeling abnormal [Unknown]

NARRATIVE: CASE EVENT DATE: 20210621
